FAERS Safety Report 6264597-1 (Version None)
Quarter: 2009Q3

REPORT INFORMATION
  Report Type: 
  Country: None (occurrence: None)
  Receive Date: 20090710
  Receipt Date: 20090707
  Transmission Date: 20100115
  Serious: Yes (Death)
  Sender: FDA-Public Use
  Company Number: PHEH2009US06815

PATIENT
  Sex: Male

DRUGS (1)
  1. GLEEVEC [Suspect]
     Indication: CHRONIC MYELOID LEUKAEMIA
     Dosage: 100 MG, BID
     Dates: start: 20080331, end: 20090223

REACTIONS (8)
  - ATRIAL FIBRILLATION [None]
  - CARDIAC FAILURE CONGESTIVE [None]
  - CHRONIC OBSTRUCTIVE PULMONARY DISEASE [None]
  - MALIGNANT NEOPLASM PROGRESSION [None]
  - POST HERPETIC NEURALGIA [None]
  - RENAL FAILURE CHRONIC [None]
  - RESPIRATORY ARREST [None]
  - URINARY RETENTION [None]
